FAERS Safety Report 6167353-8 (Version None)
Quarter: 2009Q2

REPORT INFORMATION
  Report Type: 
  Country: None (occurrence: None)
  Receive Date: 20090424
  Receipt Date: 20090416
  Transmission Date: 20091009
  Serious: Yes (Life-Threatening, Other)
  Sender: FDA-Public Use
  Company Number: RU-JNJCH-2009011103

PATIENT
  Age: 13 Month
  Sex: Male

DRUGS (1)
  1. CETIRIZINE HYDROCHLORIDE [Suspect]
     Indication: PROPHYLAXIS
     Dosage: TEXT:NI
     Route: 065

REACTIONS (3)
  - ASTHMA [None]
  - FACE OEDEMA [None]
  - LARYNGEAL OEDEMA [None]
